FAERS Safety Report 26068593 (Version 1)
Quarter: 2025Q4

REPORT INFORMATION
  Report Type: Spontaneous
  Country: EU (occurrence: EU)
  Receive Date: 20251120
  Receipt Date: 20251120
  Transmission Date: 20260117
  Serious: Yes (Life-Threatening, Hospitalization)
  Sender: MACLEODS
  Company Number: EU-MLMSERVICE-20251105-PI702600-00129-1

PATIENT

DRUGS (1)
  1. DOXYCYCLINE [Suspect]
     Active Substance: DOXYCYCLINE
     Indication: Osteomyelitis chronic
     Route: 065

REACTIONS (7)
  - Oesophageal rupture [Recovering/Resolving]
  - Septic shock [Recovering/Resolving]
  - Respiratory failure [Recovering/Resolving]
  - Pneumothorax [Recovering/Resolving]
  - Pleural effusion [Recovering/Resolving]
  - Klebsiella infection [Recovering/Resolving]
  - Oesophagitis [Recovering/Resolving]
